FAERS Safety Report 7619294-4 (Version None)
Quarter: 2011Q3

REPORT INFORMATION
  Report Type: 
  Country: None (occurrence: None)
  Receive Date: 20110718
  Receipt Date: 20110714
  Transmission Date: 20111222
  Serious: No
  Sender: FDA-Public Use
  Company Number: US-B.I. PHARMACEUTICALS,INC./RIDGEFIELD-2011-BP-11104BP

PATIENT
  Sex: Female

DRUGS (17)
  1. DIGOXIN [Concomitant]
     Indication: CARDIAC FAILURE
     Dosage: 0.125 MG
     Route: 048
  2. ATACAND [Concomitant]
     Indication: CARDIAC FAILURE
  3. THYROID TAB [Concomitant]
     Indication: HYPOTHYROIDISM
     Dosage: 60 MCG
     Route: 048
  4. NORVASC [Concomitant]
     Indication: HYPERTENSION
     Dosage: 10 MG
     Route: 048
  5. THYROID TAB [Concomitant]
  6. ZETIA [Concomitant]
     Indication: BLOOD CHOLESTEROL INCREASED
     Dosage: 10 MG
     Route: 048
  7. VITAMIN D WITH CALCIUM [Concomitant]
     Indication: OSTEOPOROSIS
     Route: 048
  8. DEMADOX [Concomitant]
     Indication: BLADDER DISORDER
     Dosage: 10 MG
     Route: 048
  9. DEMADOX [Concomitant]
     Indication: CARDIAC FAILURE
  10. ASCORBIC ACID [Concomitant]
     Indication: VITAMIN SUPPLEMENTATION
     Route: 048
  11. VITAMIN E [Concomitant]
     Indication: VITAMIN SUPPLEMENTATION
     Dosage: 200 U
     Route: 048
  12. PRADAXA [Suspect]
     Indication: ATRIAL FIBRILLATION
     Dosage: 300 MG
     Route: 048
     Dates: start: 20101201
  13. VITAMIN D [Concomitant]
     Indication: SUPPLEMENTATION THERAPY
     Route: 048
  14. ATACAND [Concomitant]
     Indication: CARDIAC DISORDER
     Dosage: 4 MG
     Route: 048
  15. DIGOXIN [Concomitant]
     Indication: ATRIAL FIBRILLATION
  16. BONIVA [Concomitant]
     Indication: OSTEOPOROSIS
     Dosage: 1-MONTHLY
     Route: 048
  17. OMEPRAZOLE [Concomitant]
     Indication: OESOPHAGEAL DISORDER

REACTIONS (4)
  - RASH PRURITIC [None]
  - PRURITUS [None]
  - FEELING COLD [None]
  - MUSCLE SPASMS [None]
